FAERS Safety Report 19316866 (Version 1)
Quarter: 2021Q2

REPORT INFORMATION
  Report Type: Spontaneous
  Country: AU (occurrence: AU)
  Receive Date: 20210527
  Receipt Date: 20210527
  Transmission Date: 20210717
  Serious: Yes (Other)
  Sender: FDA-Public Use
  Company Number: AU-ABBVIE-21K-008-3921466-00

PATIENT
  Sex: Female

DRUGS (1)
  1. HUMIRA [Suspect]
     Active Substance: ADALIMUMAB
     Indication: RHEUMATOID ARTHRITIS
     Route: 058
     Dates: start: 202101

REACTIONS (4)
  - Vision blurred [Not Recovered/Not Resolved]
  - Vision blurred [Unknown]
  - Vascular occlusion [Unknown]
  - Retinal artery stenosis [Unknown]

NARRATIVE: CASE EVENT DATE: 2021
